FAERS Safety Report 4661489-6 (Version None)
Quarter: 2005Q2

REPORT INFORMATION
  Report Type: 
  Country: None (occurrence: None)
  Receive Date: 20050512
  Receipt Date: 20050512
  Transmission Date: 20051028
  Serious: Yes (Hospitalization)
  Sender: FDA-Public Use
  Company Number: None

PATIENT
  Sex: Male
  Weight: 67.722 kg

DRUGS (6)
  1. CISPLATIN [Suspect]
     Indication: LARYNGEAL CANCER
     Dosage: 180MG     DAY 1 + 22   INTRAVENOU
     Route: 042
     Dates: start: 20050504, end: 20050504
  2. DURAGESIC-100 [Concomitant]
  3. MAGNESIUM OXIDE [Concomitant]
  4. DEXAMETHASONE [Concomitant]
  5. ATIVAN [Concomitant]
  6. REGLAN [Concomitant]

REACTIONS (4)
  - DEHYDRATION [None]
  - NAUSEA [None]
  - OESOPHAGEAL PAIN [None]
  - VOMITING [None]
